FAERS Safety Report 17948973 (Version 1)
Quarter: 2020Q2

REPORT INFORMATION
  Report Type: Spontaneous
  Country: US (occurrence: US)
  Receive Date: 20200625
  Receipt Date: 20200625
  Transmission Date: 20200714
  Serious: No
  Sender: FDA-Public Use
  Company Number: US-ROCHE-2510464

PATIENT
  Age: 63 Year
  Sex: Female
  Weight: 61.29 kg

DRUGS (2)
  1. KLONOPIN [Suspect]
     Active Substance: CLONAZEPAM
     Indication: ANXIETY
     Dosage: TAKEN AT NIGHT TIME FOR SLEEP
     Route: 048
  2. KLONOPIN [Suspect]
     Active Substance: CLONAZEPAM
     Indication: INSOMNIA

REACTIONS (7)
  - Palpitations [Not Recovered/Not Resolved]
  - Anxiety [Unknown]
  - Product coating issue [Unknown]
  - Off label use [Unknown]
  - Initial insomnia [Not Recovered/Not Resolved]
  - Product colour issue [Unknown]
  - Product quality issue [Unknown]

NARRATIVE: CASE EVENT DATE: 20191208
